FAERS Safety Report 15812533 (Version 1)
Quarter: 2019Q1

REPORT INFORMATION
  Report Type: Spontaneous
  Country: US (occurrence: US)
  Receive Date: 20190111
  Receipt Date: 20190111
  Transmission Date: 20190417
  Serious: No
  Sender: FDA-Public Use
  Company Number: US-ALLERGAN-1850040US

PATIENT
  Age: 35 Year
  Sex: Male

DRUGS (1)
  1. DALVANCE [Suspect]
     Active Substance: DALBAVANCIN
     Indication: OSTEOMYELITIS
     Dosage: 1500 MG, Q WEEK
     Route: 042
     Dates: start: 2018, end: 2018

REACTIONS (2)
  - Off label use [Unknown]
  - Blood creatinine increased [Recovered/Resolved]
